FAERS Safety Report 17146441 (Version 1)
Quarter: 2019Q4

REPORT INFORMATION
  Report Type: Spontaneous
  Country: US (occurrence: US)
  Receive Date: 20191212
  Receipt Date: 20191212
  Transmission Date: 20200122
  Serious: Yes (Hospitalization, Other)
  Sender: FDA-Public Use
  Company Number: US-HIKMA PHARMACEUTICALS USA INC.-US-H14001-19-06074

PATIENT
  Age: 3 Month
  Sex: Male

DRUGS (7)
  1. CAFFEINE. [Concomitant]
     Active Substance: CAFFEINE
     Indication: SLEEP APNOEA SYNDROME
     Route: 048
  2. AMINOCAPROIC ACID. [Concomitant]
     Active Substance: AMINOCAPROIC ACID
     Route: 065
  3. TRIMETHOPRIM/SULFAMETHOXAZOLE [Concomitant]
     Active Substance: SULFAMETHOXAZOLE\TRIMETHOPRIM
     Indication: PROPHYLAXIS
     Route: 065
  4. OCTREOTIDE. [Concomitant]
     Active Substance: OCTREOTIDE
     Indication: LYMPHANGIOMA
     Route: 065
  5. PREDNISONE. [Suspect]
     Active Substance: PREDNISONE
     Indication: LYMPHANGIOMA
     Route: 048
  6. AMINOCAPROIC ACID. [Concomitant]
     Active Substance: AMINOCAPROIC ACID
     Indication: LYMPHANGIOMA
     Route: 065
  7. OCTREOTIDE. [Concomitant]
     Active Substance: OCTREOTIDE
     Route: 065

REACTIONS (4)
  - Growth disorder [Recovered/Resolved]
  - Osteopenia [Recovered/Resolved]
  - Rib fracture [Recovered/Resolved]
  - Pneumatosis intestinalis [Recovered/Resolved]
